FAERS Safety Report 9550457 (Version 1)
Quarter: 2013Q3

REPORT INFORMATION
  Report Type: Spontaneous
  Country: US (occurrence: US)
  Receive Date: 20130924
  Receipt Date: 20130924
  Transmission Date: 20140515
  Serious: No
  Sender: FDA-Public Use
  Company Number: US-SANOFI-AVENTIS-2013SA079178

PATIENT
  Age: 52 Year
  Sex: Female

DRUGS (15)
  1. AUBAGIO [Suspect]
     Indication: MULTIPLE SCLEROSIS
     Route: 048
     Dates: start: 20130728
  2. PLAVIX [Suspect]
     Route: 065
  3. ZANTAC [Concomitant]
  4. METFORMIN [Concomitant]
  5. SERTRALINE [Concomitant]
  6. GLIPIZIDE [Concomitant]
  7. DILTIAZEM [Concomitant]
  8. CYCLOBENZAPRINE [Concomitant]
  9. IBUPROFEN [Concomitant]
  10. ATIVAN [Concomitant]
  11. GARLIC [Concomitant]
  12. MULTIVITAMINS [Concomitant]
  13. POTASSIUM GLUCONATE [Concomitant]
  14. ALL OTHER THERAPEUTIC PRODUCTS [Concomitant]
  15. VITAMIN D3 [Concomitant]

REACTIONS (1)
  - Diarrhoea [Unknown]
